FAERS Safety Report 21928047 (Version 1)
Quarter: 2023Q1

REPORT INFORMATION
  Report Type: Report from Study
  Country: NL (occurrence: None)
  Receive Date: 20230130
  Receipt Date: 20230130
  Transmission Date: 20230418
  Serious: Yes (Death, Hospitalization)
  Sender: FDA-Public Use
  Company Number: NL-ROCHE-3272928

PATIENT
  Age: 67 Year
  Sex: Female

DRUGS (2)
  1. VEMURAFENIB [Suspect]
     Active Substance: VEMURAFENIB
     Indication: Thyroid cancer
     Dosage: RECENT DOSE RECEIVED ON 23/JAN/2023
     Route: 048
     Dates: start: 20210420
  2. COBIMETINIB [Suspect]
     Active Substance: COBIMETINIB
     Indication: Thyroid cancer
     Dosage: RECENT DOSE RECEIVED ON 20/DEC/2022
     Route: 048
     Dates: start: 20210420

REACTIONS (1)
  - Respiratory distress [Fatal]

NARRATIVE: CASE EVENT DATE: 20230122
